FAERS Safety Report 8795042 (Version 1)
Quarter: 2012Q4

REPORT INFORMATION
  Report Type: 
  Country: US (occurrence: US)
  Receive Date: 20120917
  Receipt Date: 20120917
  Transmission Date: 20130627
  Serious: Yes (Death)
  Sender: FDA-Public Use
  Company Number: US-ROCHE-1098246

PATIENT
  Sex: Male

DRUGS (3)
  1. AVASTIN [Suspect]
     Indication: RENAL CANCER
     Route: 065
     Dates: start: 20061113, end: 20070723
  2. AVASTIN [Suspect]
     Indication: MALIGNANT URINARY TRACT NEOPLASM
  3. TORISEL [Concomitant]
     Route: 065
     Dates: end: 20071015

REACTIONS (1)
  - Death [Fatal]
